FAERS Safety Report 10082554 (Version 1)
Quarter: 2014Q2

REPORT INFORMATION
  Report Type: Spontaneous
  Country: US (occurrence: US)
  Receive Date: 20140416
  Receipt Date: 20140416
  Transmission Date: 20141212
  Serious: No
  Sender: FDA-Public Use
  Company Number: US-MALLINCKRODT-T201304297

PATIENT
  Age: 58 Year
  Sex: Male

DRUGS (3)
  1. METHYLIN [Suspect]
     Indication: SLEEP DISORDER
     Dosage: 10 MG, BID
     Route: 048
     Dates: start: 20130822
  2. ASA [Concomitant]
     Dosage: 81 MG, DAILY
     Route: 048
  3. DICLOFENAC [Concomitant]
     Indication: MUSCLE SPASMS
     Dosage: UNK, PRN
     Route: 048

REACTIONS (3)
  - Constipation [Not Recovered/Not Resolved]
  - Abdominal discomfort [Not Recovered/Not Resolved]
  - Abdominal pain [Not Recovered/Not Resolved]
